FAERS Safety Report 6311447-0 (Version None)
Quarter: 2009Q3

REPORT INFORMATION
  Report Type: 
  Country: None (occurrence: None)
  Receive Date: 20090806
  Receipt Date: 20090729
  Transmission Date: 20100115
  Serious: Yes (Death, Life-Threatening, Hospitalization, Other)
  Sender: FDA-Public Use
  Company Number: THYM-1001085

PATIENT
  Age: 35 Year
  Sex: Male
  Weight: 59 kg

DRUGS (5)
  1. THYMOGLOBULIN [Suspect]
     Indication: APLASTIC ANAEMIA
  2. METHYLPREDNISOLONE [Concomitant]
  3. CYCLOSPORINE [Concomitant]
  4. FILGRASTIM (FILGRASTIM) [Concomitant]
  5. PREDNISOLONE SODIUM SUCCINATE INJ [Concomitant]

REACTIONS (16)
  - BLOOD POTASSIUM INCREASED [None]
  - BLOOD PRESSURE DECREASED [None]
  - CARDIAC ARREST [None]
  - CARDIOMYOPATHY [None]
  - CARDIOTOXICITY [None]
  - DIARRHOEA [None]
  - DISSEMINATED INTRAVASCULAR COAGULATION [None]
  - GASTRIC MUCOSAL HYPERTROPHY [None]
  - GASTROINTESTINAL HAEMORRHAGE [None]
  - HYPOVOLAEMIC SHOCK [None]
  - INTRA-ABDOMINAL HAEMORRHAGE [None]
  - NEUTROPHIL COUNT INCREASED [None]
  - PAINFUL RESPIRATION [None]
  - RENAL FAILURE ACUTE [None]
  - SEPSIS [None]
  - SHOCK HAEMORRHAGIC [None]
